FAERS Safety Report 12696576 (Version 2)
Quarter: 2016Q3

REPORT INFORMATION
  Report Type: Spontaneous
  Country: US (occurrence: US)
  Receive Date: 20160830
  Receipt Date: 20160831
  Transmission Date: 20161109
  Serious: No
  Sender: FDA-Public Use
  Company Number: US-ASTRAZENECA-2014SE28497

PATIENT
  Age: 59 Year
  Sex: Male
  Weight: 88.4 kg

DRUGS (2)
  1. BRILINTA [Suspect]
     Active Substance: TICAGRELOR
     Indication: ACUTE CORONARY SYNDROME
     Route: 048
  2. BYDUREON [Suspect]
     Active Substance: EXENATIDE
     Indication: TYPE 2 DIABETES MELLITUS
     Route: 065
     Dates: start: 2014

REACTIONS (8)
  - Neuropathy peripheral [Unknown]
  - Hypertension [Unknown]
  - Contusion [Unknown]
  - Injection site nodule [Unknown]
  - Needle issue [Unknown]
  - Anxiety [Unknown]
  - Exostosis [Unknown]
  - Burning sensation [Unknown]
